FAERS Safety Report 7526482-4 (Version None)
Quarter: 2011Q2

REPORT INFORMATION
  Report Type: 
  Country: None (occurrence: None)
  Receive Date: 20110606
  Receipt Date: 20110523
  Transmission Date: 20111010
  Serious: No
  Sender: FDA-Public Use
  Company Number: US-B.I. PHARMACEUTICALS,INC./RIDGEFIELD-2011-BP-05159BP

PATIENT
  Sex: Female
  Weight: 52.84 kg

DRUGS (6)
  1. PRADAXA [Suspect]
     Indication: THROMBOSIS
  2. OMEPRAZOLE [Concomitant]
  3. LASIX [Concomitant]
  4. MICARDIS [Concomitant]
  5. PRADAXA [Suspect]
     Indication: ECHOCARDIOGRAM
  6. PRADAXA [Suspect]
     Indication: ATRIAL FIBRILLATION
     Dosage: 300 MG
     Route: 048
     Dates: start: 20110103

REACTIONS (3)
  - PRODUCT SOLUBILITY ABNORMAL [None]
  - VOMITING [None]
  - FOREIGN BODY [None]
